FAERS Safety Report 5467533-0 (Version None)
Quarter: 2007Q3

REPORT INFORMATION
  Report Type: 
  Country: None (occurrence: None)
  Receive Date: 20070925
  Receipt Date: 20070920
  Transmission Date: 20080115
  Serious: Yes (Hospitalization)
  Sender: FDA-Public Use
  Company Number: SE-BOEHRINGER INGELHEIM PHARMACEUTICALS, INC.-2006-BP-12909BP

PATIENT
  Sex: Female
  Weight: 89 kg

DRUGS (10)
  1. MICARDIS [Suspect]
     Indication: CARDIOVASCULAR DISORDER
     Dates: start: 20020418, end: 20060828
  2. MICARDIS [Suspect]
     Indication: CEREBROVASCULAR ACCIDENT PROPHYLAXIS
  3. RAMIPRIL [Suspect]
     Indication: CARDIOVASCULAR DISORDER
     Dates: start: 20020418, end: 20060828
  4. RAMIPRIL [Suspect]
     Indication: CEREBROVASCULAR ACCIDENT PROPHYLAXIS
  5. METFORMIN HCL [Concomitant]
  6. SIMVASTATIN [Concomitant]
  7. EPOETIN BETA [Concomitant]
  8. FOLIC ACID [Concomitant]
  9. CYAN COBALAMIN [Concomitant]
  10. BIMATOPROST [Concomitant]

REACTIONS (3)
  - CONFUSIONAL STATE [None]
  - FLUID INTAKE REDUCED [None]
  - RENAL FAILURE [None]
